FAERS Safety Report 11891374 (Version 1)
Quarter: 2016Q1

REPORT INFORMATION
  Report Type: Spontaneous
  Country: US (occurrence: US)
  Receive Date: 20160106
  Receipt Date: 20160106
  Transmission Date: 20160526
  Serious: No
  Sender: FDA-Public Use
  Company Number: US-BIOGEN-2015BI00165382

PATIENT
  Sex: Female

DRUGS (1)
  1. AVONEX [Suspect]
     Active Substance: INTERFERON BETA-1A
     Indication: PRODUCT USED FOR UNKNOWN INDICATION
     Route: 065

REACTIONS (9)
  - Malaise [Recovered/Resolved]
  - Alopecia [Recovered/Resolved]
  - Pyrexia [Recovered/Resolved]
  - Infection susceptibility increased [Recovered/Resolved]
  - Feeling of despair [Recovered/Resolved]
  - Feeling abnormal [Recovered/Resolved]
  - Psychiatric symptom [Recovered/Resolved]
  - Influenza [Recovered/Resolved]
  - General symptom [Recovered/Resolved]
